FAERS Safety Report 4658822-8 (Version None)
Quarter: 2005Q2

REPORT INFORMATION
  Report Type: 
  Country: None (occurrence: None)
  Receive Date: 20050511
  Receipt Date: 20050429
  Transmission Date: 20051028
  Serious: Yes (Death, Life-Threatening, Other)
  Sender: FDA-Public Use
  Company Number: 2004-11-0382

PATIENT
  Age: 77 Year
  Sex: Male
  Weight: 90.5 kg

DRUGS (8)
  1. ASPIRIN [Suspect]
     Indication: DRUG USE FOR UNKNOWN INDICATION
     Dosage: 81MG PER DAY
     Route: 048
     Dates: start: 20041103
  2. CLOPIDOGREL BISULFATE [Suspect]
     Indication: THERAPEUTIC PROCEDURE
     Dosage: 75MG PER DAY
     Route: 048
     Dates: start: 20041103
  3. HEPARIN [Suspect]
     Indication: THERAPEUTIC PROCEDURE
     Dosage: 5000UNIT PER DAY
     Dates: start: 20041103, end: 20041103
  4. METOPROLOL TARTRATE [Concomitant]
     Indication: DRUG USE FOR UNKNOWN INDICATION
     Dosage: 5MG PER DAY
     Route: 042
  5. NITROGLYCERIN [Concomitant]
     Indication: DRUG USE FOR UNKNOWN INDICATION
     Dosage: 200MCG PER DAY
     Route: 016
  6. IRBESARTAN [Concomitant]
     Indication: DRUG USE FOR UNKNOWN INDICATION
     Dosage: 150MG PER DAY
     Route: 048
  7. GALANTAMINE HYDROBROMIDE [Concomitant]
     Indication: DRUG USE FOR UNKNOWN INDICATION
     Dosage: 8MG PER DAY
     Route: 048
  8. INTEGRILIN [Concomitant]
     Indication: THERAPEUTIC PROCEDURE
     Route: 042
     Dates: start: 20041103, end: 20041104

REACTIONS (6)
  - CARDIAC FLUTTER [None]
  - CARDIO-RESPIRATORY ARREST [None]
  - CEREBRAL HAEMORRHAGE [None]
  - DEPRESSED LEVEL OF CONSCIOUSNESS [None]
  - HYDROCEPHALUS [None]
  - RESPIRATORY ARREST [None]
